FAERS Safety Report 8422686-7 (Version None)
Quarter: 2012Q2

REPORT INFORMATION
  Report Type: 
  Country: None (occurrence: None)
  Receive Date: 20120608
  Receipt Date: 20120528
  Transmission Date: 20120825
  Serious: Yes (Hospitalization)
  Sender: FDA-Public Use
  Company Number: JP-ROCHE-1073634

PATIENT
  Sex: Male
  Weight: 56 kg

DRUGS (9)
  1. FAMOTIDINE [Concomitant]
     Indication: ADVERSE DRUG REACTION
     Route: 048
  2. SENNARIDE [Concomitant]
     Indication: CONSTIPATION
     Route: 048
     Dates: start: 20101227
  3. ALINAMIN F [Concomitant]
     Indication: VITAMIN SUPPLEMENTATION
     Route: 048
     Dates: start: 20110418
  4. ACTEMRA [Suspect]
     Route: 042
     Dates: start: 20100712
  5. ACTEMRA [Suspect]
     Indication: RHEUMATOID ARTHRITIS
     Route: 058
     Dates: start: 20101227
  6. LOXONIN [Concomitant]
     Indication: RHEUMATOID ARTHRITIS
     Route: 048
     Dates: start: 20100706
  7. LULICONAZOLE [Concomitant]
     Indication: TINEA INFECTION
     Route: 003
  8. PLACEBO [Suspect]
     Indication: RHEUMATOID ARTHRITIS
     Route: 058
     Dates: start: 20100712
  9. LOXONIN [Concomitant]
     Route: 062
     Dates: start: 20100705

REACTIONS (2)
  - COLONIC POLYP [None]
  - OCCULT BLOOD POSITIVE [None]
